FAERS Safety Report 9245151 (Version 3)
Quarter: 2013Q2

REPORT INFORMATION
  Report Type: Spontaneous
  Country: US (occurrence: US)
  Receive Date: 20130422
  Receipt Date: 20130521
  Transmission Date: 20140414
  Serious: Yes (Hospitalization, Other)
  Sender: FDA-Public Use
  Company Number: US-PFIZER INC-2013122197

PATIENT
  Age: 48 Year
  Sex: Female
  Weight: 118 kg

DRUGS (5)
  1. REVATIO [Suspect]
     Indication: PULMONARY HYPERTENSION
     Dosage: 60 MG, 1X/DAY
     Dates: end: 201302
  2. VIAGRA [Suspect]
     Indication: PULMONARY HYPERTENSION
     Dosage: UNK
  3. PREDNISONE [Concomitant]
     Indication: SARCOIDOSIS
     Dosage: 10 MG, 1X/DAY
  4. COUMADIN [Concomitant]
     Indication: ANTICOAGULANT THERAPY
     Dosage: 6 MG, 1X/DAY
  5. DIGOXIN [Concomitant]
     Dosage: UNK

REACTIONS (2)
  - Myocardial infarction [Unknown]
  - Off label use [Unknown]
